FAERS Safety Report 24287091 (Version 2)
Quarter: 2024Q3

REPORT INFORMATION
  Report Type: Spontaneous
  Country: JP (occurrence: JP)
  Receive Date: 20240905
  Receipt Date: 20240910
  Transmission Date: 20241016
  Serious: Yes (Other)
  Sender: BAUSCH AND LOMB
  Company Number: JP-MLMSERVICE-20240828-PI172375-00117-1

PATIENT
  Age: 73 Year
  Sex: Male

DRUGS (9)
  1. DEXAMETHASONE [Suspect]
     Active Substance: DEXAMETHASONE
     Indication: Diffuse large B-cell lymphoma
     Dosage: THIRD-LINE CHEMOTHERAPY (HIGH-DOSE)
     Route: 065
  2. OXYCODONE [Concomitant]
     Active Substance: OXYCODONE
     Indication: Tumour pain
     Dosage: EXTENDED-RELEASE TABLET
  3. OXYCODONE [Concomitant]
     Active Substance: OXYCODONE
     Dosage: IMMEDIATE-RELEASE TABLET
     Route: 048
  4. TAPENTADOL [Concomitant]
     Active Substance: TAPENTADOL
     Indication: Tumour pain
     Route: 048
  5. LEMBOREXANT [Concomitant]
     Active Substance: LEMBOREXANT
     Indication: Tumour pain
     Route: 048
  6. PREGABALIN [Concomitant]
     Active Substance: PREGABALIN
     Indication: Tumour pain
  7. GEMCITABINE [Concomitant]
     Active Substance: GEMCITABINE
     Indication: Diffuse large B-cell lymphoma
     Dosage: THIRD-LINE CHEMOTHERAPY
  8. CARBOPLATIN [Concomitant]
     Active Substance: CARBOPLATIN
     Indication: Diffuse large B-cell lymphoma
     Dosage: THIRD-LINE CHEMOTHERAPY
  9. RITUXIMAB [Concomitant]
     Active Substance: RITUXIMAB
     Indication: Diffuse large B-cell lymphoma
     Dosage: THIRD-LINE CHEMOTHERAPY

REACTIONS (1)
  - Delirium [Recovering/Resolving]
